FAERS Safety Report 9775184 (Version 2)
Quarter: 2013Q4

REPORT INFORMATION
  Report Type: Report from Study
  Country: ID (occurrence: ID)
  Receive Date: 20131220
  Receipt Date: 20131220
  Transmission Date: 20140711
  Serious: Yes (Death)
  Sender: FDA-Public Use
  Company Number: ID-ROCHE-1277004

PATIENT
  Age: 38 Year
  Sex: Male
  Weight: 40 kg

DRUGS (3)
  1. RITUXIMAB [Suspect]
     Indication: B-CELL LYMPHOMA
     Dosage: LAST DOSE PRIOR TO SAE 06/SEP/2013
     Route: 042
     Dates: start: 20130906
  2. BETADINE MOUTHWASH/GARGLE [Concomitant]
  3. TRANEXAMIC ACID [Concomitant]

REACTIONS (1)
  - Death [Fatal]
